FAERS Safety Report 24388405 (Version 1)
Quarter: 2024Q4

REPORT INFORMATION
  Report Type: Spontaneous
  Country: KR (occurrence: KR)
  Receive Date: 20241002
  Receipt Date: 20241002
  Transmission Date: 20250115
  Serious: Yes (Death)
  Sender: MALLINCKRODT
  Company Number: KR-MALLINCKRODT-MNK202406038

PATIENT
  Age: 0 Year
  Weight: 1 kg

DRUGS (1)
  1. NITRIC OXIDE [Suspect]
     Active Substance: NITRIC OXIDE
     Indication: Pulmonary hypertension
     Dosage: 20 PPM
     Route: 055
     Dates: start: 20240916, end: 20240921

REACTIONS (3)
  - Cardiac failure [Fatal]
  - Newborn persistent pulmonary hypertension [Fatal]
  - Product use issue [Unknown]

NARRATIVE: CASE EVENT DATE: 20240901
